FAERS Safety Report 19102012 (Version 3)
Quarter: 2021Q4

REPORT INFORMATION
  Report Type: Spontaneous
  Country: IN (occurrence: IN)
  Receive Date: 20210407
  Receipt Date: 20211111
  Transmission Date: 20220303
  Serious: Yes (Other)
  Sender: FDA-Public Use
  Company Number: IN-PFIZER INC-2018536463

PATIENT
  Age: 70 Year
  Sex: Male

DRUGS (6)
  1. SUTENT [Suspect]
     Active Substance: SUNITINIB MALATE
     Indication: Metastatic renal cell carcinoma
     Dosage: 37.5 MG, CYCLIC (ONCE A DAY, 2 WEEKS ON AND 1 WEEK OFF)
     Route: 048
     Dates: start: 20181227
  2. SUTENT [Suspect]
     Active Substance: SUNITINIB MALATE
     Dosage: 50 MG, CYCLIC (DAILY X 14 DAYS ON AND 7 DAYS OFF)
  3. LINAGLIPTIN [Concomitant]
     Active Substance: LINAGLIPTIN
     Dosage: 5MG ONCE A DAY (FASTING IF B SUGAR)} 14 MG/DL
  4. ACETYLCYSTEINE [Concomitant]
     Active Substance: ACETYLCYSTEINE
     Dosage: 600 MG, 2X/DAY ((1/2 GLAN) OF WATER)
  5. BUDESONIDE\FORMOTEROL FUMARATE [Concomitant]
     Active Substance: BUDESONIDE\FORMOTEROL FUMARATE
     Dosage: UNK UNK, (0.5MG) 2X/DAY
  6. ZIFI [Concomitant]
     Dosage: 200 MG, 2X/DAY

REACTIONS (9)
  - Hypothyroidism [Unknown]
  - Coronary artery disease [Unknown]
  - Haemoglobin decreased [Unknown]
  - Hypertension [Unknown]
  - Mobility decreased [Unknown]
  - Neoplasm progression [Unknown]
  - Albuminuria [Unknown]
  - Oedema [Unknown]
  - Platelet count decreased [Unknown]

NARRATIVE: CASE EVENT DATE: 20211012
